FAERS Safety Report 9315484 (Version 1)
Quarter: 2013Q2

REPORT INFORMATION
  Report Type: Report from Study
  Country: US (occurrence: US)
  Receive Date: 20130529
  Receipt Date: 20130529
  Transmission Date: 20140414
  Serious: Yes (Other)
  Sender: FDA-Public Use
  Company Number: US-PURDUE-USA-2013-0102689

PATIENT
  Age: 54 Year
  Sex: Female

DRUGS (2)
  1. OXYCONTIN (NDA 22-272) [Suspect]
     Indication: PRODUCT USED FOR UNKNOWN INDICATION
     Dosage: 80 MG, Q8H
     Route: 048
  2. ANTIDEPRESSANTS [Concomitant]
     Indication: STRESS
     Dosage: UNK
     Dates: start: 201212

REACTIONS (4)
  - Bladder prolapse [Not Recovered/Not Resolved]
  - Urinary incontinence [Not Recovered/Not Resolved]
  - Cystitis [Not Recovered/Not Resolved]
  - Stress [Not Recovered/Not Resolved]
